FAERS Safety Report 5775536-1 (Version None)
Quarter: 2008Q2

REPORT INFORMATION
  Report Type: 
  Country: None (occurrence: None)
  Receive Date: 20080612
  Receipt Date: 20080222
  Transmission Date: 20081010
  Serious: Yes (Hospitalization, Other)
  Sender: FDA-Public Use
  Company Number: PAR_02229_2008

PATIENT
  Age: 33 Year
  Sex: Female

DRUGS (5)
  1. IBUPROFEN [Suspect]
     Indication: DRUG USE FOR UNKNOWN INDICATION
     Dosage: DF
  2. ACETAMINOPHEN [Suspect]
     Indication: DRUG USE FOR UNKNOWN INDICATION
     Dosage: DF
  3. NARROWBAND UVB PHOTOTHERAPY [Suspect]
     Indication: LICHEN PLANUS
     Dosage: DF CUTAENEOUS
     Route: 003
  4. GONADOTROPINS (GONADOTROPIN) [Suspect]
     Indication: INFERTILITY FEMALE
     Dosage: DF
  5. THYROXIN (UNKNOWN) [Concomitant]

REACTIONS (2)
  - LICHEN PLANUS [None]
  - PEMPHIGOID [None]
